FAERS Safety Report 10037366 (Version 1)
Quarter: 2014Q1

REPORT INFORMATION
  Report Type: Spontaneous
  Country: GB (occurrence: GB)
  Receive Date: 20140326
  Receipt Date: 20140326
  Transmission Date: 20141002
  Serious: Yes (Hospitalization)
  Sender: FDA-Public Use
  Company Number: GB-SA-2014SA033851

PATIENT
  Sex: Female

DRUGS (3)
  1. CLEXANE [Suspect]
     Indication: IN VITRO FERTILISATION
     Route: 065
     Dates: start: 2013
  2. CYCLOGEST [Concomitant]
     Indication: IN VITRO FERTILISATION
  3. ASPIRIN [Concomitant]

REACTIONS (4)
  - Haemoptysis [Not Recovered/Not Resolved]
  - Pulmonary mass [Not Recovered/Not Resolved]
  - Off label use [Unknown]
  - Exposure during pregnancy [Unknown]
